FAERS Safety Report 5053616-6 (Version None)
Quarter: 2006Q3

REPORT INFORMATION
  Report Type: 
  Country: None (occurrence: None)
  Receive Date: 20060718
  Receipt Date: 20060706
  Transmission Date: 20061208
  Serious: Yes (Other)
  Sender: FDA-Public Use
  Company Number: PHBS2006JP10280

PATIENT

DRUGS (1)
  1. LUDIOMIL [Suspect]
     Dosage: UNK, UNK
     Route: 048
     Dates: start: 20020101

REACTIONS (1)
  - PLEURISY [None]
